FAERS Safety Report 7103592-7 (Version None)
Quarter: 2010Q4

REPORT INFORMATION
  Report Type: 
  Country: None (occurrence: None)
  Receive Date: 20101115
  Receipt Date: 20101102
  Transmission Date: 20110411
  Serious: Yes (Other)
  Sender: FDA-Public Use
  Company Number: SE-MYLANLABS-2010S1020157

PATIENT
  Age: 64 Year
  Sex: Female

DRUGS (8)
  1. ALPRAZOLAM [Suspect]
     Indication: PAIN
     Route: 048
     Dates: start: 20100601, end: 20100701
  2. ALPRAZOLAM [Suspect]
     Dates: start: 20100730
  3. ALPRAZOLAM [Suspect]
     Dates: start: 20100811, end: 20100930
  4. ALPRAZOLAM [Suspect]
     Dates: start: 20101001
  5. IMOVANE [Concomitant]
     Indication: PRODUCT USED FOR UNKNOWN INDICATION
  6. TRADOLAN [Concomitant]
     Indication: PRODUCT USED FOR UNKNOWN INDICATION
  7. TRYPTIZOL [Concomitant]
     Indication: PRODUCT USED FOR UNKNOWN INDICATION
  8. CYMBALTA [Concomitant]
     Indication: PRODUCT USED FOR UNKNOWN INDICATION
     Dates: start: 20100701, end: 20100701

REACTIONS (5)
  - ANOSMIA [None]
  - BLEPHAROSPASM [None]
  - MUCOSAL DRYNESS [None]
  - NASAL MUCOSAL DISORDER [None]
  - VERTIGO [None]
